FAERS Safety Report 9746158 (Version 2)
Quarter: 2013Q4

REPORT INFORMATION
  Report Type: Report from Study
  Country: US (occurrence: US)
  Receive Date: 20131211
  Receipt Date: 20131211
  Transmission Date: 20140711
  Serious: Yes (Other)
  Sender: FDA-Public Use
  Company Number: US-BMSGILMSD-2009-0025758

PATIENT
  Age: 43 Year
  Sex: Female

DRUGS (3)
  1. EFAVIRENZ/EMTRICITABINE/TENOFOVIR DISOPROXIL FUMARATE [Suspect]
     Indication: HIV INFECTION
     Dates: start: 20090731
  2. METFORMIN [Concomitant]
     Indication: TYPE 2 DIABETES MELLITUS
     Dates: start: 20090827, end: 20091031
  3. LISINOPRIL [Concomitant]
     Indication: TYPE 2 DIABETES MELLITUS
     Dates: start: 20090827, end: 20091031

REACTIONS (1)
  - Aspartate aminotransferase increased [Recovered/Resolved]
